FAERS Safety Report 20673349 (Version 1)
Quarter: 2022Q2

REPORT INFORMATION
  Report Type: Spontaneous
  Country: US (occurrence: None)
  Receive Date: 20220403
  Receipt Date: 20220403
  Transmission Date: 20220721
  Serious: No
  Sender: FDA-Public Use
  Company Number: None

PATIENT
  Age: 69 Year
  Sex: Male
  Weight: 111 kg

DRUGS (1)
  1. HYDRALAZINE HYDROCHLORIDE [Suspect]
     Active Substance: HYDRALAZINE HYDROCHLORIDE
     Indication: Hypertension
     Dosage: FREQUENCY : 3 TIMES A DAY;?
     Route: 048
     Dates: start: 20140401, end: 20211109

REACTIONS (5)
  - Rales [None]
  - Respiratory failure [None]
  - Antineutrophil cytoplasmic antibody positive [None]
  - Antineutrophil cytoplasmic antibody positive [None]
  - Vasculitis [None]

NARRATIVE: CASE EVENT DATE: 20211210
